FAERS Safety Report 8539595-5 (Version None)
Quarter: 2012Q3

REPORT INFORMATION
  Report Type: 
  Country: None (occurrence: None)
  Receive Date: 20120726
  Receipt Date: 20120718
  Transmission Date: 20120928
  Serious: Yes (Other)
  Sender: FDA-Public Use
  Company Number: DE-UCBSA-061354

PATIENT
  Age: 66 Year
  Sex: Male
  Weight: 183 kg

DRUGS (16)
  1. CARBIMAZOL [Concomitant]
     Dosage: DAILY DOSE : 5 MG
     Route: 048
  2. SIMVASTATIN [Concomitant]
  3. FORADIL [Concomitant]
  4. HYDROXYCHLOROQUINE SULFATE [Concomitant]
  5. SULFASALAZINE [Concomitant]
  6. LEFLUNOMIDE [Concomitant]
  7. METHOTREXATE [Concomitant]
     Route: 058
  8. HYDROCHLOROTHIAZIDE [Concomitant]
  9. METOPROLOL TARTRATE [Concomitant]
     Dosage: SINGLE DOSE : 47.5, 1-0-1/2
     Route: 048
  10. SPIRIVA [Concomitant]
  11. GABAPENTIN [Concomitant]
     Dosage: DAILY DOSE : 300 MG
     Route: 048
  12. VALORON [Concomitant]
  13. CIMZIA [Suspect]
     Indication: POLYARTHRITIS
     Dosage: 200 MG TWICE
     Route: 058
     Dates: start: 20120525, end: 20120629
  14. ALLOPURINOL [Concomitant]
     Route: 048
  15. PANTOPRAZOLE [Concomitant]
  16. RAMIPRIL [Concomitant]

REACTIONS (3)
  - DIARRHOEA [None]
  - RESTLESSNESS [None]
  - BLOOD CREATINE PHOSPHOKINASE INCREASED [None]
